FAERS Safety Report 6280148-X (Version None)
Quarter: 2009Q3

REPORT INFORMATION
  Report Type: 
  Country: None (occurrence: None)
  Receive Date: 20090723
  Receipt Date: 20090720
  Transmission Date: 20100115
  Serious: Yes (Death, Hospitalization)
  Sender: FDA-Public Use
  Company Number: PHEH2007US16330

PATIENT
  Sex: Female

DRUGS (5)
  1. GLEEVEC [Suspect]
     Indication: GASTROINTESTINAL STROMAL TUMOUR
     Dosage: 400 MG, QD
     Route: 048
     Dates: start: 20070824
  2. OXYCODONE HCL [Concomitant]
     Indication: ABDOMINAL PAIN
     Dosage: 5 MG, Q4H
     Route: 048
  3. LORAZEPAM [Concomitant]
     Indication: ANXIETY
     Dosage: 0.5 MG, Q8H
     Route: 048
     Dates: start: 20070501
  4. PROTONIX [Concomitant]
     Dosage: 40 MG, BID
     Dates: start: 20070901
  5. ZOFRAN [Concomitant]
     Dosage: 8 MG PRN Q8H
     Route: 048
     Dates: start: 20060919

REACTIONS (2)
  - GASTROINTESTINAL HAEMORRHAGE [None]
  - NEOPLASM PROGRESSION [None]
